FAERS Safety Report 6885987-X (Version None)
Quarter: 2010Q3

REPORT INFORMATION
  Report Type: 
  Country: None (occurrence: None)
  Receive Date: 20100729
  Receipt Date: 20080324
  Transmission Date: 20110219
  Serious: No
  Sender: FDA-Public Use
  Company Number: US-PFIZER INC-2008026253

PATIENT
  Sex: Female
  Weight: 63.5 kg

DRUGS (8)
  1. CELEBREX [Suspect]
     Indication: ARTHRITIS
     Route: 048
     Dates: start: 20070101
  2. CELEBREX [Suspect]
     Indication: BACK DISORDER
  3. CLONIDINE [Concomitant]
     Indication: BLOOD PRESSURE
     Route: 048
  4. METOPROLOL TARTRATE [Concomitant]
     Indication: BLOOD PRESSURE
     Route: 048
  5. METFORMIN HCL [Concomitant]
     Route: 048
  6. TRAMADOL HYDROCHLORIDE [Concomitant]
     Route: 048
  7. SYNTHROID [Concomitant]
     Route: 048
  8. NEXIUM [Concomitant]
     Route: 048

REACTIONS (2)
  - DRY SKIN [None]
  - PRURITUS [None]
